FAERS Safety Report 8439149-5 (Version None)
Quarter: 2012Q2

REPORT INFORMATION
  Report Type: 
  Country: None (occurrence: None)
  Receive Date: 20120615
  Receipt Date: 20120611
  Transmission Date: 20120825
  Serious: No
  Sender: FDA-Public Use
  Company Number: US-BAYER-2012-058664

PATIENT
  Age: 67 Year
  Sex: Female
  Weight: 51.701 kg

DRUGS (2)
  1. MULTI-VITAMIN [Concomitant]
  2. ALEVE (CAPLET) [Suspect]
     Indication: ARTHRITIS
     Dosage: 1 U, QD
     Route: 048
     Dates: start: 20110601

REACTIONS (1)
  - HYPERTENSION [None]
